FAERS Safety Report 10553492 (Version 1)
Quarter: 2014Q4

REPORT INFORMATION
  Report Type: Spontaneous
  Country: US (occurrence: None)
  Receive Date: 20141029
  Receipt Date: 20141029
  Transmission Date: 20150529
  Serious: Yes (Death)
  Sender: FDA-Public Use
  Company Number: None

PATIENT
  Age: 77 Year
  Sex: Female

DRUGS (1)
  1. HUMIRA [Suspect]
     Active Substance: ADALIMUMAB
     Indication: COLITIS ULCERATIVE
     Dosage: 40 MG 1 EVERY OTHER WEEK INJECTION
     Dates: start: 20131128, end: 20140513

REACTIONS (1)
  - Septic shock [None]

NARRATIVE: CASE EVENT DATE: 20140526
